FAERS Safety Report 5612895-4 (Version None)
Quarter: 2008Q1

REPORT INFORMATION
  Report Type: 
  Country: None (occurrence: None)
  Receive Date: 20080204
  Receipt Date: 20080122
  Transmission Date: 20080703
  Serious: No
  Sender: FDA-Public Use
  Company Number: US-BOEHRINGER INGELHEIM GMBH, GERMANY-2008-BP-01050BP

PATIENT
  Sex: Male

DRUGS (5)
  1. FLOMAX [Suspect]
     Indication: BENIGN PROSTATIC HYPERPLASIA
     Route: 048
     Dates: start: 20071114
  2. VASOTEC [Concomitant]
  3. NORVASC [Concomitant]
  4. ZOCOR [Concomitant]
  5. MOBIC [Concomitant]
     Indication: ARTHRITIS

REACTIONS (1)
  - NOCTURIA [None]
